FAERS Safety Report 9123848 (Version 1)
Quarter: 2013Q1

REPORT INFORMATION
  Report Type: Spontaneous
  Country: FR (occurrence: FR)
  Receive Date: 20130227
  Receipt Date: 20130227
  Transmission Date: 20140127
  Serious: Yes (Other)
  Sender: FDA-Public Use
  Company Number: FR-ELI_LILLY_AND_COMPANY-FR201302008112

PATIENT
  Age: 82 Year
  Sex: Female

DRUGS (1)
  1. FORSTEO [Suspect]
     Dosage: 20 UG, QD
     Route: 058

REACTIONS (2)
  - Syncope [Recovered/Resolved]
  - Pain in extremity [Unknown]
